FAERS Safety Report 7219213-9 (Version None)
Quarter: 2011Q1

REPORT INFORMATION
  Report Type: 
  Country: None (occurrence: None)
  Receive Date: 20110111
  Receipt Date: 20110103
  Transmission Date: 20110831
  Serious: No
  Sender: FDA-Public Use
  Company Number: US-PFIZER INC-2010176231

PATIENT
  Sex: Female
  Weight: 62.585 kg

DRUGS (5)
  1. ESTRING [Suspect]
     Indication: INSOMNIA
  2. MULTIVITAMIN [Concomitant]
     Dosage: UNK
     Route: 048
  3. ACETYLSALICYLIC ACID [Concomitant]
     Dosage: 81 MG, UNK
     Route: 048
  4. ESTRING [Suspect]
     Indication: HORMONE LEVEL ABNORMAL
     Dosage: 2 MG, UNK
     Route: 067
     Dates: start: 20101101, end: 20101101
  5. ESTRING [Suspect]
     Indication: OFF LABEL USE

REACTIONS (2)
  - VAGINAL DISCHARGE [None]
  - PELVIC PAIN [None]
